FAERS Safety Report 9761906 (Version 1)
Quarter: 2013Q4

REPORT INFORMATION
  Report Type: Spontaneous
  Country: US (occurrence: US)
  Receive Date: 20131216
  Receipt Date: 20131216
  Transmission Date: 20140711
  Serious: No
  Sender: FDA-Public Use
  Company Number: US-BIOGENIDEC-2013BI104058

PATIENT
  Age: 55 Year
  Sex: Female
  Weight: 102 kg

DRUGS (10)
  1. TECFIDERA [Suspect]
     Indication: PRODUCT USED FOR UNKNOWN INDICATION
     Route: 048
  2. PROVIGIL [Concomitant]
     Route: 048
  3. STRATTERA [Concomitant]
     Route: 048
  4. HYDROCHLOROTHIAZIDE [Concomitant]
     Route: 048
  5. ATORVASTATIN [Concomitant]
     Route: 048
  6. BACLOFEN [Concomitant]
     Route: 048
  7. SYNTHROID [Concomitant]
     Route: 048
  8. VITAMIN D [Concomitant]
     Route: 048
  9. FISH OIL [Concomitant]
     Route: 048
  10. TUMS [Concomitant]
     Route: 048

REACTIONS (2)
  - Abdominal pain upper [Unknown]
  - Diarrhoea [Unknown]
